FAERS Safety Report 4740940-7 (Version None)
Quarter: 2005Q3

REPORT INFORMATION
  Report Type: 
  Country: None (occurrence: None)
  Receive Date: 20050808
  Receipt Date: 20050728
  Transmission Date: 20060218
  Serious: Yes (Death, Other)
  Sender: FDA-Public Use
  Company Number: MC200500664

PATIENT
  Age: 62 Year
  Sex: Female

DRUGS (4)
  1. ANGIOMAX [Suspect]
     Dosage: 250 MG (5ML VIA), INTRAVENOUS
     Route: 042
  2. INTEGRILIN [Suspect]
     Dosage: SEE IMAGE
     Route: 042
  3. PLAVIX [Suspect]
     Dosage: 75 MG, ORAL
     Route: 048
  4. ASPIRIN [Suspect]
     Dosage: 81 MG , ORAL
     Route: 048

REACTIONS (5)
  - DYSPNOEA [None]
  - HAEMATEMESIS [None]
  - HAEMOTHORAX [None]
  - HYPOTENSION [None]
  - NAUSEA [None]
